FAERS Safety Report 14969313 (Version 1)
Quarter: 2018Q2

REPORT INFORMATION
  Report Type: Spontaneous
  Country: AU (occurrence: AU)
  Receive Date: 20180604
  Receipt Date: 20180604
  Transmission Date: 20180711
  Serious: Yes (Death)
  Sender: FDA-Public Use
  Company Number: AU-ACTELION-A-CH2018-173018

PATIENT
  Age: 57 Year
  Sex: Female

DRUGS (2)
  1. TADALAFIL [Suspect]
     Active Substance: TADALAFIL
     Indication: SYSTEMIC SCLERODERMA
     Dosage: 40 MG, OD
     Route: 048
     Dates: start: 201509, end: 20180516
  2. OPSUMIT [Suspect]
     Active Substance: MACITENTAN
     Indication: SYSTEMIC SCLERODERMA
     Dosage: 10 MG, UNK
     Route: 048
     Dates: start: 20150922, end: 20180516

REACTIONS (2)
  - Neoplasm malignant [Fatal]
  - Small cell lung cancer [Fatal]

NARRATIVE: CASE EVENT DATE: 20180516
